FAERS Safety Report 5638677-5 (Version None)
Quarter: 2008Q1

REPORT INFORMATION
  Report Type: 
  Country: None (occurrence: None)
  Receive Date: 20080226
  Receipt Date: 20071009
  Transmission Date: 20080703
  Serious: No
  Sender: FDA-Public Use
  Company Number: A0686667A

PATIENT
  Age: 31 Year
  Sex: Female

DRUGS (5)
  1. IMITREX [Suspect]
     Indication: MIGRAINE
     Dosage: 4MG VARIABLE DOSE
     Route: 058
     Dates: start: 20070501
  2. PERCOCET [Concomitant]
  3. SOMA [Concomitant]
  4. ATIVAN [Concomitant]
  5. MORPHINE [Concomitant]

REACTIONS (2)
  - INJECTION SITE IRRITATION [None]
  - WEIGHT DECREASED [None]
